FAERS Safety Report 6647696-1 (Version None)
Quarter: 2010Q1

REPORT INFORMATION
  Report Type: 
  Country: None (occurrence: None)
  Receive Date: 20100323
  Receipt Date: 20100323
  Transmission Date: 20100710
  Serious: Yes (Death)
  Sender: FDA-Public Use
  Company Number: None

PATIENT
  Age: 68 Year
  Sex: Male
  Weight: 83.4619 kg

DRUGS (2)
  1. PLAVIX [Suspect]
     Indication: CORONARY ARTERIAL STENT INSERTION
     Dosage: 75 MG TID BY MOUTH
     Route: 048
     Dates: start: 19970101
  2. AGGRENOX [Suspect]
     Indication: CEREBROVASCULAR ACCIDENT
     Dosage: 25/200 BID BY MOUTH
     Route: 048
     Dates: start: 20100207

REACTIONS (8)
  - BODY TEMPERATURE DECREASED [None]
  - BRAIN CONTUSION [None]
  - BRAIN HERNIATION [None]
  - BRAIN MIDLINE SHIFT [None]
  - BRAIN OEDEMA [None]
  - CEREBRAL HAEMORRHAGE [None]
  - FALL [None]
  - HEAD INJURY [None]
